FAERS Safety Report 10424531 (Version 2)
Quarter: 2014Q4

REPORT INFORMATION
  Report Type: Spontaneous
  Country: FR (occurrence: None)
  Receive Date: 20140826
  Receipt Date: 20141103
  Transmission Date: 20150528
  Serious: Yes (Life-Threatening, Other)
  Sender: FDA-Public Use
  Company Number: ALB-007-14-FR

PATIENT
  Age: 30 Year
  Sex: Male

DRUGS (6)
  1. CICLOSPORINE [Concomitant]
     Active Substance: CYCLOSPORINE
  2. CHOLECALCIFEROL [Concomitant]
     Active Substance: CHOLECALCIFEROL
  3. ALBUNORM 5% (HUMAN ALBUMIN) [Suspect]
     Active Substance: ALBUMIN (HUMAN)
     Indication: MUSCULAR WEAKNESS
     Dosage: 5500 ML (1X 1/TOTAL), INTRAVNEOUS (NOT OTHERWISE SPECIFIED)?
     Route: 042
     Dates: start: 20140724, end: 20140726
  4. PREDNISONE. [Concomitant]
     Active Substance: PREDNISONE
  5. PYRIDOSTIGMINE [Concomitant]
     Active Substance: PYRIDOSTIGMINE
  6. CALCIUM CARBONATE. [Concomitant]
     Active Substance: CALCIUM CARBONATE

REACTIONS (2)
  - Thrombocytopenia [None]
  - Disease complication [None]

NARRATIVE: CASE EVENT DATE: 20140726
